FAERS Safety Report 23182784 (Version 4)
Quarter: 2024Q1

REPORT INFORMATION
  Report Type: Report from Study
  Country: US (occurrence: US)
  Receive Date: 20231114
  Receipt Date: 20240212
  Transmission Date: 20240410
  Serious: Yes (Hospitalization)
  Sender: FDA-Public Use
  Company Number: US-ABBVIE-5412621

PATIENT
  Sex: Female

DRUGS (4)
  1. HUMIRA [Suspect]
     Active Substance: ADALIMUMAB
     Indication: Crohn^s disease
     Route: 058
     Dates: start: 201001, end: 202010
  2. HYOSCYAMINE SULFATE [Suspect]
     Active Substance: HYOSCYAMINE SULFATE
     Indication: Gastrointestinal pain
     Dosage: START DATE TEXT: 35 TO 40 YEARS AGO?EXTENDED RELEASES
     Route: 065
  3. PREDNISONE [Suspect]
     Active Substance: PREDNISONE
     Indication: Product used for unknown indication
     Dosage: FORM STRENGTH: 60 MG
     Route: 048
  4. STELARA [Suspect]
     Active Substance: USTEKINUMAB
     Indication: Crohn^s disease
     Route: 065
     Dates: start: 2021, end: 2023

REACTIONS (12)
  - Crohn^s disease [Recovered/Resolved]
  - Poor quality sleep [Not Recovered/Not Resolved]
  - Therapeutic product effect decreased [Not Recovered/Not Resolved]
  - Dry throat [Unknown]
  - Oropharyngeal pain [Not Recovered/Not Resolved]
  - Clostridium difficile infection [Unknown]
  - Drug level decreased [Unknown]
  - Stress [Not Recovered/Not Resolved]
  - Skin lesion [Not Recovered/Not Resolved]
  - Drug level increased [Unknown]
  - Irritable bowel syndrome [Unknown]
  - Crohn^s disease [Not Recovered/Not Resolved]

NARRATIVE: CASE EVENT DATE: 20130101
